FAERS Safety Report 5272525-0 (Version None)
Quarter: 2007Q1

REPORT INFORMATION
  Report Type: 
  Country: None (occurrence: None)
  Receive Date: 20070320
  Receipt Date: 20070320
  Transmission Date: 20070707
  Serious: Yes (Other)
  Sender: FDA-Public Use
  Company Number: None

PATIENT
  Age: 69 Year
  Sex: Female
  Weight: 59.4212 kg

DRUGS (1)
  1. READICAT 2 APPLE SMOOTHIE  2.1% W/V 2.0% W/W EZEM INC [Suspect]
     Indication: ABDOMINAL PAIN
     Dosage: 450ML  PO
     Route: 048
     Dates: start: 20070302, end: 20070303

REACTIONS (4)
  - CONTRAST MEDIA REACTION [None]
  - PHARMACEUTICAL PRODUCT COMPLAINT [None]
  - PRURITUS [None]
  - URTICARIA [None]
